FAERS Safety Report 8347540-0 (Version None)
Quarter: 2012Q2

REPORT INFORMATION
  Report Type: 
  Country: None (occurrence: None)
  Receive Date: 20120509
  Receipt Date: 20120425
  Transmission Date: 20120825
  Serious: No
  Sender: FDA-Public Use
  Company Number: US-BAYER-2012-043678

PATIENT
  Age: 68 Year
  Sex: Male
  Weight: 88 kg

DRUGS (4)
  1. NAPROXEN SODIUM [Suspect]
     Indication: MYALGIA
     Dosage: 1 U, BID
     Route: 048
     Dates: start: 20120418, end: 20120425
  2. LIPITOR [Concomitant]
  3. ACTOS [Concomitant]
  4. GLUCOPHAGE [Concomitant]

REACTIONS (2)
  - MYALGIA [None]
  - GASTROOESOPHAGEAL REFLUX DISEASE [None]
